FAERS Safety Report 5101913-8 (Version None)
Quarter: 2006Q3

REPORT INFORMATION
  Report Type: 
  Country: None (occurrence: None)
  Receive Date: 20060907
  Receipt Date: 20060829
  Transmission Date: 20061208
  Serious: Yes (Hospitalization)
  Sender: FDA-Public Use
  Company Number: 2006VX001226

PATIENT
  Age: 61 Year
  Sex: Female

DRUGS (2)
  1. INTERFERON ALFACON-1 [Suspect]
     Indication: HEPATITIS C
     Dosage: 15 UG; QD; SC
     Route: 058
     Dates: start: 20060410
  2. RIBAVIRIN [Concomitant]

REACTIONS (4)
  - DYSURIA [None]
  - ENZYME ABNORMALITY [None]
  - MUSCULOSKELETAL DISORDER [None]
  - PANCREATIC DISORDER [None]
